FAERS Safety Report 10684024 (Version 1)
Quarter: 2014Q4

REPORT INFORMATION
  Report Type: Spontaneous
  Country: JP (occurrence: JP)
  Receive Date: 20141230
  Receipt Date: 20141230
  Transmission Date: 20150529
  Serious: Yes (Hospitalization, Disabling, Other)
  Sender: FDA-Public Use
  Company Number: JP-SUCAMPO AG-SPI201400959

PATIENT
  Age: 75 Year
  Sex: Female
  Weight: 45 kg

DRUGS (9)
  1. SANPILO [Suspect]
     Active Substance: PILOCARPINE HYDROCHLORIDE
     Indication: OPEN ANGLE GLAUCOMA
     Dosage: 8 GTT, UNK
     Route: 047
     Dates: start: 1998, end: 20000831
  2. XALATAN [Suspect]
     Active Substance: LATANOPROST
     Indication: GLAUCOMA
  3. BETOPTIC [Suspect]
     Active Substance: BETAXOLOL HYDROCHLORIDE
     Indication: OPEN ANGLE GLAUCOMA
     Dosage: 4 GTT, UNK
     Route: 047
     Dates: start: 199801, end: 20000831
  4. TRUSOPT [Suspect]
     Active Substance: DORZOLAMIDE HYDROCHLORIDE
     Indication: GLAUCOMA
     Dosage: 3 GTT, UNK
     Route: 047
     Dates: start: 199801, end: 20000831
  5. DIAMOX SEQUELS [Suspect]
     Active Substance: ACETAZOLAMIDE
     Indication: GLAUCOMA
     Dosage: 1 UNK, BID
     Route: 048
     Dates: start: 20000831
  6. HYALEIN [Concomitant]
     Active Substance: HYALURONATE SODIUM
     Dosage: 16 UNK, QD
     Route: 047
     Dates: start: 199804
  7. RESCULA [Suspect]
     Active Substance: UNOPROSTONE ISOPROPYL
     Indication: OPEN ANGLE GLAUCOMA
     Dosage: 4 GTT, OU QD
     Route: 047
     Dates: start: 199801
  8. PIVALEPHRINE [Suspect]
     Active Substance: DIPIVEFRIN HYDROCHLORIDE
     Indication: OPEN ANGLE GLAUCOMA
     Dosage: 8 GTT, UNK
     Route: 047
     Dates: start: 199801, end: 20000831
  9. TIMOPTOL [Suspect]
     Active Substance: TIMOLOL
     Indication: GLAUCOMA
     Dosage: 1 GTT, UNK
     Route: 047
     Dates: start: 200105

REACTIONS (7)
  - Symblepharon [Unknown]
  - Punctate keratitis [Unknown]
  - Corneal opacity [Unknown]
  - Ulcerative keratitis [Recovered/Resolved]
  - Hypopyon [Unknown]
  - Ocular pemphigoid [Unknown]
  - Conjunctival disorder [Unknown]

NARRATIVE: CASE EVENT DATE: 200008
